FAERS Safety Report 5360934-0 (Version None)
Quarter: 2007Q2

REPORT INFORMATION
  Report Type: 
  Country: None (occurrence: None)
  Receive Date: 20070618
  Receipt Date: 20070206
  Transmission Date: 20071010
  Serious: Yes (Other)
  Sender: FDA-Public Use
  Company Number: US-PFIZER INC-2007010405

PATIENT
  Sex: Male
  Weight: 88.5 kg

DRUGS (2)
  1. LIPITOR [Suspect]
     Indication: BLOOD CHOLESTEROL INCREASED
  2. CELEBREX [Concomitant]

REACTIONS (4)
  - ARTHRALGIA [None]
  - DYSSTASIA [None]
  - MUSCULAR WEAKNESS [None]
  - PAIN IN EXTREMITY [None]
